FAERS Safety Report 26169188 (Version 1)
Quarter: 2025Q4

REPORT INFORMATION
  Report Type: Report from Study
  Country: AR (occurrence: AR)
  Receive Date: 20251217
  Receipt Date: 20251217
  Transmission Date: 20260118
  Serious: Yes (Other)
  Sender: ROCHE
  Company Number: AR-ROCHE-10000457938

PATIENT

DRUGS (3)
  1. ALECTINIB [Suspect]
     Active Substance: ALECTINIB
     Indication: Small cell lung cancer
  2. CRIZOTINIB [Suspect]
     Active Substance: CRIZOTINIB
     Indication: Small cell lung cancer
  3. LORLATINIB [Suspect]
     Active Substance: LORLATINIB
     Indication: Small cell lung cancer

REACTIONS (6)
  - Hepatitis [Unknown]
  - Pneumonitis [Unknown]
  - Nausea [Unknown]
  - Vomiting [Unknown]
  - Asthenia [Unknown]
  - Oedema [Unknown]
